FAERS Safety Report 15650453 (Version 2)
Quarter: 2018Q4

REPORT INFORMATION
  Report Type: Spontaneous
  Country: US (occurrence: US)
  Receive Date: 20181123
  Receipt Date: 20181129
  Transmission Date: 20190205
  Serious: Yes (Hospitalization, Other)
  Sender: FDA-Public Use
  Company Number: US-009507513-1504USA010908

PATIENT
  Age: 51 Year
  Sex: Female
  Weight: 52 kg

DRUGS (17)
  1. CUBICIN [Suspect]
     Active Substance: DAPTOMYCIN
     Indication: STAPHYLOCOCCAL INFECTION
     Dosage: 9.6 MG/KG, Q24H
     Route: 042
     Dates: start: 20080818, end: 20080904
  2. CIPROFLOXACIN. [Suspect]
     Active Substance: CIPROFLOXACIN
     Indication: PRODUCT USED FOR UNKNOWN INDICATION
     Dosage: 500 MG, BID
     Route: 065
     Dates: end: 20080904
  3. DIGOXIN. [Concomitant]
     Active Substance: DIGOXIN
     Dosage: UNK UNK, UNK
  4. FLAGYL [Suspect]
     Active Substance: METRONIDAZOLE\METRONIDAZOLE HYDROCHLORIDE
     Indication: PRODUCT USED FOR UNKNOWN INDICATION
     Dosage: 1 GRAM QD
     Route: 065
     Dates: end: 20080904
  5. MILK OF MAGNESIA [Concomitant]
     Active Substance: MAGNESIUM HYDROXIDE
     Dosage: UNK UNK, UNK
  6. TUSSIONEX (BROMHEXINE HYDROCHLORIDE) [Concomitant]
     Dosage: UNK UNK, UNK
  7. COLACE [Concomitant]
     Active Substance: DOCUSATE SODIUM
     Dosage: UNK UNK, UNK
  8. PAXIL [Concomitant]
     Active Substance: PAROXETINE HYDROCHLORIDE
     Dosage: UNK UNK, UNK
  9. AMBIEN [Concomitant]
     Active Substance: ZOLPIDEM TARTRATE
     Dosage: UNK UNK, UNK
  10. CUBICIN [Suspect]
     Active Substance: DAPTOMYCIN
     Dosage: UNK
     Route: 065
     Dates: start: 20080818, end: 20080827
  11. ALPRAZOLAM. [Concomitant]
     Active Substance: ALPRAZOLAM
     Dosage: UNK UNK, UNK
  12. LASIX [Concomitant]
     Active Substance: FUROSEMIDE
     Dosage: UNK UNK, UNK
  13. MEGACE [Concomitant]
     Active Substance: MEGESTROL ACETATE
     Dosage: UNK UNK, UNK
  14. PERCOCET [Concomitant]
     Active Substance: ACETAMINOPHEN\OXYCODONE HYDROCHLORIDE
     Dosage: UNK UNK, UNK
  15. DUONEB [Concomitant]
     Active Substance: ALBUTEROL SULFATE\IPRATROPIUM BROMIDE
     Dosage: UNK UNK, UNK
  16. CLONIDINE. [Concomitant]
     Active Substance: CLONIDINE
     Dosage: UNK UNK, UNK
  17. COUMADIN [Concomitant]
     Active Substance: WARFARIN SODIUM
     Dosage: UNK UNK, UNK

REACTIONS (12)
  - Asthenia [Recovered/Resolved]
  - Restlessness [Unknown]
  - Vision blurred [Recovered/Resolved]
  - Generalised tonic-clonic seizure [Recovered/Resolved]
  - Overdose [Recovered/Resolved]
  - Condition aggravated [Recovered/Resolved]
  - Myalgia [Recovered/Resolved]
  - Escherichia urinary tract infection [Unknown]
  - Hypoglycaemia [Recovered/Resolved]
  - Chest discomfort [Recovered/Resolved]
  - Anxiety [Unknown]
  - Weight decreased [Recovered/Resolved]

NARRATIVE: CASE EVENT DATE: 200808
